FAERS Safety Report 17967335 (Version 1)
Quarter: 2020Q3

REPORT INFORMATION
  Report Type: Spontaneous
  Country: GB (occurrence: GB)
  Receive Date: 20200701
  Receipt Date: 20200701
  Transmission Date: 20201103
  Serious: Yes (Other)
  Sender: FDA-Public Use
  Company Number: GB-TEVA-2020-GB-1793242

PATIENT
  Age: 69 Year
  Sex: Female
  Weight: 59 kg

DRUGS (5)
  1. DOCETAXEL. [Suspect]
     Active Substance: DOCETAXEL
     Indication: BREAST CANCER
     Dosage: 96 MG
     Route: 042
     Dates: start: 20200605, end: 20200605
  2. PERTUZUMAB. [Concomitant]
     Active Substance: PERTUZUMAB
  3. TRASTUZUMAB. [Concomitant]
     Active Substance: TRASTUZUMAB
  4. CARBOPLATIN. [Concomitant]
     Active Substance: CARBOPLATIN
  5. ONDANSETRON [Concomitant]
     Active Substance: ONDANSETRON

REACTIONS (6)
  - Back pain [Unknown]
  - Flushing [Unknown]
  - Palpitations [Unknown]
  - Malaise [Unknown]
  - Dizziness [Unknown]
  - Infusion related reaction [Recovering/Resolving]

NARRATIVE: CASE EVENT DATE: 20200605
